FAERS Safety Report 4817871-7 (Version None)
Quarter: 2005Q3

REPORT INFORMATION
  Report Type: 
  Country: None (occurrence: None)
  Receive Date: 20050929
  Receipt Date: 20050627
  Transmission Date: 20060218
  Serious: No
  Sender: FDA-Public Use
  Company Number: 05P-163-0304207-00

PATIENT
  Age: 74 Year
  Sex: Female
  Weight: 68.9467 kg

DRUGS (8)
  1. HUMIRA [Suspect]
     Indication: RHEUMATOID ARTHRITIS
     Dosage: SEE IMAGE
     Route: 058
     Dates: start: 20050301, end: 20050601
  2. HUMIRA [Suspect]
     Indication: RHEUMATOID ARTHRITIS
     Dosage: SEE IMAGE
     Route: 058
     Dates: start: 20050601
  3. METHOTREXATE [Concomitant]
  4. PREDNISONE [Concomitant]
  5. DYAZIDE [Concomitant]
  6. ATENOLOL [Concomitant]
  7. ENAPRANIL [Concomitant]
  8. ALENDRONATE SODIUM [Concomitant]

REACTIONS (1)
  - LYMPHADENOPATHY [None]
